FAERS Safety Report 5657926-0 (Version None)
Quarter: 2008Q1

REPORT INFORMATION
  Report Type: 
  Country: None (occurrence: None)
  Receive Date: 20080310
  Receipt Date: 20080228
  Transmission Date: 20080703
  Serious: Yes (Other)
  Sender: FDA-Public Use
  Company Number: PHFR2008GB01010

PATIENT
  Age: 42 Year
  Sex: Female
  Weight: 64 kg

DRUGS (5)
  1. OXCARBAZEPINE [Suspect]
     Indication: EPILEPSY
     Dosage: 600 MG, BID
     Route: 048
     Dates: start: 20080112, end: 20080121
  2. AMISULPRIDE [Concomitant]
     Indication: PSYCHOTIC DISORDER
     Dosage: 200 MG, BID
     Route: 048
  3. CLOBAZAM [Concomitant]
     Indication: EPILEPSY
     Dosage: 10 MG, QD
     Route: 048
  4. LEVETIRACETAM [Concomitant]
     Indication: EPILEPSY
     Dosage: 1500 MG, BID
     Route: 048
  5. TEGRETOL [Concomitant]
     Indication: EPILEPSY
     Dosage: 500 MG, BID
     Route: 048

REACTIONS (3)
  - FEEDING DISORDER [None]
  - GAIT DISTURBANCE [None]
  - SOMNOLENCE [None]
